FAERS Safety Report 8365752-7 (Version None)
Quarter: 2012Q2

REPORT INFORMATION
  Report Type: 
  Country: None (occurrence: None)
  Receive Date: 20120516
  Receipt Date: 20120423
  Transmission Date: 20120825
  Serious: No
  Sender: FDA-Public Use
  Company Number: PHHY2009KR29988

PATIENT
  Sex: Male
  Weight: 16 kg

DRUGS (1)
  1. EXJADE [Suspect]
     Indication: APLASTIC ANAEMIA
     Dosage: 20 MG/KG
     Route: 048
     Dates: start: 20080101, end: 20090302

REACTIONS (1)
  - SERUM FERRITIN ABNORMAL [None]
